FAERS Safety Report 8499392-6 (Version None)
Quarter: 2012Q3

REPORT INFORMATION
  Report Type: 
  Country: None (occurrence: None)
  Receive Date: 20120710
  Receipt Date: 20120628
  Transmission Date: 20120928
  Serious: Yes (Other)
  Sender: FDA-Public Use
  Company Number: JP-VERTEX PHARMACEUTICALS INC.-AE-2012-009770

PATIENT
  Age: 42 Year
  Sex: Male

DRUGS (8)
  1. TELAVIC (TELAPREVIR) [Suspect]
     Indication: HEPATITIS C
     Route: 048
     Dates: start: 20120514, end: 20120516
  2. PEG-INTRON [Concomitant]
     Indication: HEPATITIS C
     Route: 058
     Dates: start: 20120514, end: 20120514
  3. TELAVIC (TELAPREVIR) [Suspect]
     Route: 048
     Dates: start: 20120517
  4. REBETOL [Concomitant]
     Indication: HEPATITIS C
     Route: 048
     Dates: start: 20120514
  5. METFORMIN HCL [Concomitant]
     Route: 048
  6. PEG-INTRON [Concomitant]
     Route: 058
     Dates: start: 20120521
  7. AMARYL [Concomitant]
     Route: 048
  8. JANUVIA [Concomitant]
     Route: 048

REACTIONS (1)
  - NEUTROPHIL COUNT DECREASED [None]
